FAERS Safety Report 21936879 (Version 2)
Quarter: 2023Q1

REPORT INFORMATION
  Report Type: Spontaneous
  Country: AT (occurrence: AT)
  Receive Date: 20230201
  Receipt Date: 20230203
  Transmission Date: 20230418
  Serious: Yes (Other)
  Sender: FDA-Public Use
  Company Number: None

PATIENT
  Age: 46 Year
  Sex: Female

DRUGS (18)
  1. LORAZEPAM [Suspect]
     Active Substance: LORAZEPAM
     Dosage: 1 MG
     Dates: start: 20220516, end: 20220518
  2. LORAZEPAM [Suspect]
     Active Substance: LORAZEPAM
     Dosage: 0.75 MG
     Dates: start: 20220519, end: 20220524
  3. LORAZEPAM [Suspect]
     Active Substance: LORAZEPAM
     Dosage: 0.5 MG
     Dates: start: 20220525, end: 20220528
  4. LORAZEPAM [Suspect]
     Active Substance: LORAZEPAM
     Dosage: 0.25 MG
     Dates: start: 20220529, end: 20220601
  5. PREGABALIN [Suspect]
     Active Substance: PREGABALIN
     Dosage: 400 MG
     Dates: start: 20220517, end: 20220517
  6. PREGABALIN [Suspect]
     Active Substance: PREGABALIN
     Dosage: 500 MG
     Dates: start: 20220518, end: 20220523
  7. PREGABALIN [Suspect]
     Active Substance: PREGABALIN
     Dosage: 600 MG
     Dates: start: 20220524, end: 20220524
  8. PREGABALIN [Suspect]
     Active Substance: PREGABALIN
     Dosage: 700 MG
     Dates: start: 20220525, end: 20220610
  9. CIPRALEX [Suspect]
     Active Substance: ESCITALOPRAM OXALATE
     Dosage: 20 MG
     Dates: start: 20220516, end: 20220525
  10. CIPRALEX [Suspect]
     Active Substance: ESCITALOPRAM OXALATE
     Dosage: 10 MG
     Dates: start: 20220526, end: 20220528
  11. DOMINAL (PROTHIPENDYL HYDROCHLORIDE) [Suspect]
     Active Substance: PROTHIPENDYL HYDROCHLORIDE
     Dosage: 80 MG
     Dates: start: 20220518, end: 20220614
  12. MILNACIPRAN HYDROCHLORIDE [Suspect]
     Active Substance: MILNACIPRAN HYDROCHLORIDE
     Dosage: 25 MG
     Dates: start: 20220525, end: 20220526
  13. MILNACIPRAN HYDROCHLORIDE [Suspect]
     Active Substance: MILNACIPRAN HYDROCHLORIDE
     Dosage: 50 MG
     Dates: start: 20220527, end: 20220527
  14. AMITRIPTYLINE [Suspect]
     Active Substance: AMITRIPTYLINE
     Dosage: 50 MG
     Dates: start: 20220516, end: 20220525
  15. AMITRIPTYLINE [Suspect]
     Active Substance: AMITRIPTYLINE
     Dosage: 25 MG
     Dates: start: 20220526, end: 20220528
  16. ZOLPIDEM [Suspect]
     Active Substance: ZOLPIDEM TARTRATE
     Dosage: 10 MG
     Dates: start: 20220516, end: 20220614
  17. ATORVASTATIN [Concomitant]
     Active Substance: ATORVASTATIN
     Dosage: 10 MG
     Dates: start: 20220524, end: 20220614
  18. PANTOPRAZOLE SODIUM [Concomitant]
     Active Substance: PANTOPRAZOLE SODIUM
     Dosage: 40 MG
     Dates: start: 20220516, end: 20220603

REACTIONS (1)
  - Urinary hesitation [Recovered/Resolved]

NARRATIVE: CASE EVENT DATE: 20220527
